FAERS Safety Report 5253194-2 (Version None)
Quarter: 2007Q1

REPORT INFORMATION
  Report Type: 
  Country: None (occurrence: None)
  Receive Date: 20070301
  Receipt Date: 20070221
  Transmission Date: 20070707
  Serious: Yes (Hospitalization)
  Sender: FDA-Public Use
  Company Number: JP-MERCK-0611USA03170

PATIENT
  Age: 58 Year
  Sex: Female

DRUGS (3)
  1. MAXALT [Suspect]
     Indication: MIGRAINE
     Route: 048
     Dates: start: 20061018, end: 20061018
  2. ZANTAC [Concomitant]
     Route: 048
     Dates: start: 20050829
  3. PURSENNID [Concomitant]
     Route: 048
     Dates: start: 20060829

REACTIONS (1)
  - CONVULSION [None]
